FAERS Safety Report 4326214-7 (Version None)
Quarter: 2004Q1

REPORT INFORMATION
  Report Type: 
  Country: None (occurrence: None)
  Receive Date: 20040323
  Receipt Date: 20040112
  Transmission Date: 20041129
  Serious: No
  Sender: FDA-Public Use
  Company Number: USA040156378

PATIENT
  Age: 62 Year
  Sex: Male
  Weight: 73 kg

DRUGS (4)
  1. CIALIS [Suspect]
     Indication: PENIS DISORDER
     Dosage: 5 MG/EVERY OTHER DAY
     Dates: start: 20040104
  2. TRICOR [Concomitant]
  3. PRAVACHOL [Concomitant]
  4. PLAVIX [Concomitant]

REACTIONS (2)
  - ABNORMAL DREAMS [None]
  - INSOMNIA [None]
